FAERS Safety Report 11515545 (Version 9)
Quarter: 2018Q1

REPORT INFORMATION
  Report Type: Report from Study
  Country: US (occurrence: US)
  Receive Date: 20150916
  Receipt Date: 20180326
  Transmission Date: 20180508
  Serious: Yes (Hospitalization, Other)
  Sender: FDA-Public Use
  Company Number: US-ACTELION-A-NJ2013-89090

PATIENT
  Age: 31 Year
  Sex: Male

DRUGS (21)
  1. TRACLEER [Suspect]
     Active Substance: BOSENTAN
     Dosage: 31.25 MG, BID
     Route: 048
     Dates: start: 200807
  2. HYDROXYUREA. [Suspect]
     Active Substance: HYDROXYUREA
     Indication: SICKLE CELL ANAEMIA
     Dosage: 500 MG, BID
     Route: 065
  3. COUMADIN [Concomitant]
     Active Substance: WARFARIN SODIUM
  4. ALBUTEROL. [Concomitant]
     Active Substance: ALBUTEROL
  5. VALIUM [Concomitant]
     Active Substance: DIAZEPAM
     Dosage: UNK
  6. TRACLEER [Suspect]
     Active Substance: BOSENTAN
     Dosage: 31.25 MG, QD
     Route: 048
     Dates: start: 20100729
  7. TRACLEER [Suspect]
     Active Substance: BOSENTAN
     Dosage: 31.25 MG, BID
     Route: 048
  8. ADVAIR HFA [Concomitant]
     Active Substance: FLUTICASONE PROPIONATE\SALMETEROL XINAFOATE
  9. LOPRESSOR [Concomitant]
     Active Substance: METOPROLOL TARTRATE
     Dosage: UNK
  10. HYDROCORTISONE. [Concomitant]
     Active Substance: HYDROCORTISONE
  11. CYMBALTA [Concomitant]
     Active Substance: DULOXETINE HYDROCHLORIDE
     Dosage: UNK
  12. NEURONTIN [Concomitant]
     Active Substance: GABAPENTIN
     Dosage: UNK
  13. EXJADE [Concomitant]
     Active Substance: DEFERASIROX
     Dosage: 100 MG, QPM
  14. METHOTREXATE. [Concomitant]
     Active Substance: METHOTREXATE
     Dosage: UNK
  15. SYMBICORT [Concomitant]
     Active Substance: BUDESONIDE\FORMOTEROL FUMARATE DIHYDRATE
  16. OXYCODONE [Concomitant]
     Active Substance: OXYCODONE
     Dosage: UNK
  17. TRACLEER [Suspect]
     Active Substance: BOSENTAN
     Dosage: 62.5 MG, BID
     Route: 048
  18. TRACLEER [Suspect]
     Active Substance: BOSENTAN
     Indication: PULMONARY HYPERTENSION
     Dosage: 62.5 MG, BID
     Route: 048
     Dates: start: 20100226
  19. LOVENOX [Concomitant]
     Active Substance: ENOXAPARIN SODIUM
  20. SILDENAFIL. [Concomitant]
     Active Substance: SILDENAFIL
  21. MORPHINE [Concomitant]
     Active Substance: MORPHINE
     Dosage: UNK

REACTIONS (16)
  - Pain [Unknown]
  - Transfusion [Recovered/Resolved]
  - Small intestinal obstruction [Unknown]
  - Sickle cell anaemia with crisis [Unknown]
  - Escherichia infection [Unknown]
  - Sepsis [Unknown]
  - Haemoglobin decreased [Unknown]
  - Acute respiratory failure [Unknown]
  - Pancreatitis [Unknown]
  - Haemolytic anaemia [Unknown]
  - Constipation [Unknown]
  - Septic shock [Unknown]
  - Pancytopenia [Recovering/Resolving]
  - Polyarthritis [Unknown]
  - Pneumonia [Unknown]
  - Dyspnoea [Recovering/Resolving]

NARRATIVE: CASE EVENT DATE: 20150717
